FAERS Safety Report 9405436 (Version 1)
Quarter: 2013Q3

REPORT INFORMATION
  Report Type: Spontaneous
  Country: IN (occurrence: JP)
  Receive Date: 20130717
  Receipt Date: 20130717
  Transmission Date: 20140515
  Serious: Yes (Hospitalization, Other)
  Sender: FDA-Public Use
  Company Number: IN-009507513-1307JPN005611

PATIENT
  Age: 43 Year
  Sex: Female
  Weight: 60.91 kg

DRUGS (5)
  1. SAPHRIS [Suspect]
     Indication: SCHIZOPHRENIA
     Dosage: 5 MG, BID
  2. MAGLAX [Concomitant]
  3. LORAZEPAM [Concomitant]
  4. LENDORMIN [Concomitant]
  5. PURSENNID (SENNA) [Concomitant]

REACTIONS (9)
  - Chromaturia [Unknown]
  - Oliguria [Unknown]
  - Body temperature decreased [Unknown]
  - Continuous haemodiafiltration [Unknown]
  - Water intoxication [Unknown]
  - Unresponsive to stimuli [Unknown]
  - Electrolyte imbalance [Unknown]
  - Fall [Unknown]
  - Neuroleptic malignant syndrome [Unknown]
